FAERS Safety Report 21944894 (Version 1)
Quarter: 2023Q1

REPORT INFORMATION
  Report Type: Spontaneous
  Country: US (occurrence: US)
  Receive Date: 20230202
  Receipt Date: 20230202
  Transmission Date: 20230417
  Serious: Yes (Hospitalization, Other)
  Sender: FDA-Public Use
  Company Number: US-009507513-2301USA009966

PATIENT
  Sex: Male

DRUGS (1)
  1. KEYTRUDA [Suspect]
     Active Substance: PEMBROLIZUMAB
     Indication: Metastatic renal cell carcinoma
     Dosage: UNK
     Dates: start: 20221007

REACTIONS (4)
  - Acute kidney injury [Recovering/Resolving]
  - Pyrexia [Unknown]
  - Liver function test increased [Unknown]
  - Renal vein thrombosis [Unknown]

NARRATIVE: CASE EVENT DATE: 20221101
